FAERS Safety Report 5800057-7 (Version None)
Quarter: 2008Q3

REPORT INFORMATION
  Report Type: 
  Country: None (occurrence: None)
  Receive Date: 20080703
  Receipt Date: 20080619
  Transmission Date: 20090109
  Serious: Yes (Other)
  Sender: FDA-Public Use
  Company Number: JP-GENENTECH-263530

PATIENT
  Sex: Female

DRUGS (5)
  1. AVASTIN [Suspect]
     Indication: COLON CANCER METASTATIC
     Dosage: 3.75 MG/KG, UNK
     Route: 041
     Dates: start: 20080404
  2. OXALIPLATIN [Suspect]
     Indication: COLON CANCER METASTATIC
     Route: 041
     Dates: start: 20080404, end: 20080515
  3. FLUOROURACIL [Concomitant]
     Indication: COLON CANCER METASTATIC
     Dates: start: 20080404
  4. CALCIUM LEVOFOLINATE [Concomitant]
     Indication: COLON CANCER METASTATIC
     Dates: start: 20080404
  5. IRINOTECAN [Concomitant]
     Indication: COLON CANCER METASTATIC

REACTIONS (1)
  - ANAPHYLACTIC SHOCK [None]
